FAERS Safety Report 20691448 (Version 1)
Quarter: 2022Q2

REPORT INFORMATION
  Report Type: Spontaneous
  Country: US (occurrence: US)
  Receive Date: 20220408
  Receipt Date: 20220408
  Transmission Date: 20220721
  Serious: No
  Sender: FDA-Public Use
  Company Number: US-PFIZER INC-2021757566

PATIENT
  Age: 69 Year
  Sex: Male
  Weight: 90.72 kg

DRUGS (2)
  1. CHANTIX [Suspect]
     Active Substance: VARENICLINE TARTRATE
     Indication: Smoking cessation therapy
     Dosage: 5 MG, 2X/DAY
     Dates: start: 202103
  2. CHANTIX [Suspect]
     Active Substance: VARENICLINE TARTRATE
     Dosage: 10 MG, 2X/DAY (10MG TWICE A DAY AFTER MEALS)
     Dates: end: 20210622

REACTIONS (1)
  - Abnormal dreams [Unknown]
